FAERS Safety Report 7528314-7 (Version None)
Quarter: 2011Q2

REPORT INFORMATION
  Report Type: 
  Country: None (occurrence: None)
  Receive Date: 20110607
  Receipt Date: 20110531
  Transmission Date: 20111010
  Serious: Yes (Other)
  Sender: FDA-Public Use
  Company Number: US-SANOFI-AVENTIS-2011SA034636

PATIENT
  Age: 67 Year
  Sex: Male

DRUGS (4)
  1. ANTIHYPERTENSIVES [Concomitant]
  2. ALLEGRA [Suspect]
     Route: 048
     Dates: start: 20110525, end: 20110528
  3. ALLEGRA [Suspect]
     Route: 048
     Dates: start: 20110525, end: 20110528
  4. ALCOHOL [Concomitant]
     Dosage: HAD TWO BEERS

REACTIONS (1)
  - URINARY TRACT OBSTRUCTION [None]
